FAERS Safety Report 4898008-5 (Version None)
Quarter: 2006Q1

REPORT INFORMATION
  Report Type: 
  Country: None (occurrence: None)
  Receive Date: 20060130
  Receipt Date: 20060117
  Transmission Date: 20060701
  Serious: Yes (Hospitalization, Other)
  Sender: FDA-Public Use
  Company Number: 200513054BWH

PATIENT
  Age: 84 Year
  Sex: Male
  Weight: 97.5234 kg

DRUGS (7)
  1. SORAFENIB [Suspect]
     Indication: METASTATIC RENAL CELL CARCINOMA
     Dosage: 400 MG, BID, ORAL
     Route: 048
     Dates: start: 20051125, end: 20051219
  2. SORAFENIB [Suspect]
     Indication: METASTATIC RENAL CELL CARCINOMA
     Dosage: 400 MG, BID, ORAL
     Route: 048
     Dates: start: 20051228, end: 20060113
  3. NORVASC [Concomitant]
  4. SENOKOT [Concomitant]
  5. PROSCAR [Concomitant]
  6. FLOMAX [Concomitant]
  7. OCUVITE [Concomitant]

REACTIONS (8)
  - ABDOMINAL STRANGULATED HERNIA [None]
  - AORTIC VALVE INCOMPETENCE [None]
  - BLOOD PRESSURE SYSTOLIC INCREASED [None]
  - CARDIAC FAILURE CONGESTIVE [None]
  - MENTAL STATUS CHANGES [None]
  - PLEURAL EFFUSION [None]
  - SUPRAVENTRICULAR TACHYCARDIA [None]
  - TRICUSPID VALVE INCOMPETENCE [None]
